FAERS Safety Report 9136400 (Version 1)
Quarter: 2013Q1

REPORT INFORMATION
  Report Type: Spontaneous
  Country: PR (occurrence: PR)
  Receive Date: 20130304
  Receipt Date: 20130304
  Transmission Date: 20140127
  Serious: Yes (Hospitalization)
  Sender: FDA-Public Use
  Company Number: PR-ASTRAZENECA-2013SE12584

PATIENT
  Age: 23 Year
  Sex: Female

DRUGS (4)
  1. ANASTROZOLE [Suspect]
     Route: 048
  2. STANOZOLOL [Suspect]
  3. GROWTH HORMONE [Suspect]
  4. DROSTANOLONE PROPIONATE [Suspect]

REACTIONS (4)
  - Drug abuse [Unknown]
  - Acute myocardial infarction [Recovered/Resolved]
  - Intracardiac thrombus [None]
  - Coronary artery occlusion [None]
